FAERS Safety Report 17749745 (Version 5)
Quarter: 2021Q1

REPORT INFORMATION
  Report Type: Other
  Country: CA (occurrence: CA)
  Receive Date: 20200506
  Receipt Date: 20210306
  Transmission Date: 20210419
  Serious: Yes (Hospitalization)
  Sender: FDA-Public Use
  Company Number: CA-ROCHE-2591486

PATIENT
  Sex: Male

DRUGS (1)
  1. OCREVUS [Suspect]
     Active Substance: OCRELIZUMAB
     Indication: RELAPSING-REMITTING MULTIPLE SCLEROSIS
     Dosage: 300 MG ON DAY 0, 14 THEN 600 MG EVERY 6 MONTH.?SECOND DOSE RECEIVED ON 18/FEB/2020
     Route: 042
     Dates: start: 20200204

REACTIONS (1)
  - COVID-19 [Recovered/Resolved]
